FAERS Safety Report 17441906 (Version 22)
Quarter: 2023Q1

REPORT INFORMATION
  Report Type: Spontaneous
  Country: CA (occurrence: CA)
  Receive Date: 20200220
  Receipt Date: 20230213
  Transmission Date: 20230418
  Serious: Yes (Other)
  Sender: FDA-Public Use
  Company Number: CA-ALLERGAN-1761788US

PATIENT
  Sex: Male

DRUGS (163)
  1. MESALAMINE [Suspect]
     Active Substance: MESALAMINE
     Indication: Colitis ulcerative
     Dosage: 2.4 G, QD
     Dates: start: 202109, end: 202109
  2. MESALAMINE [Suspect]
     Active Substance: MESALAMINE
     Dosage: UNK
     Dates: start: 202109, end: 202109
  3. MESALAMINE [Suspect]
     Active Substance: MESALAMINE
     Dosage: UNK
     Dates: start: 2017
  4. MESALAMINE [Suspect]
     Active Substance: MESALAMINE
     Dosage: UNK
     Dates: start: 2017, end: 201709
  5. MESALAMINE [Suspect]
     Active Substance: MESALAMINE
     Dosage: 8DF Q 8 WEEKS
     Dates: start: 201707
  6. MESALAMINE [Suspect]
     Active Substance: MESALAMINE
     Dosage: 50 MG
     Dates: start: 20170901, end: 2019
  7. MESALAMINE [Suspect]
     Active Substance: MESALAMINE
     Dosage: 50 MG
     Route: 048
     Dates: start: 20170101, end: 201701
  8. MESALAMINE [Suspect]
     Active Substance: MESALAMINE
     Dosage: UNK
     Dates: start: 20170101, end: 201701
  9. MESALAMINE [Suspect]
     Active Substance: MESALAMINE
     Dosage: UNK
     Dates: start: 20170101, end: 20171001
  10. MESALAMINE [Suspect]
     Active Substance: MESALAMINE
     Dosage: UNK
     Dates: start: 20170101, end: 20171001
  11. MESALAMINE [Suspect]
     Active Substance: MESALAMINE
     Dosage: 4.8 MG, QD
     Dates: start: 20170101
  12. MESALAMINE [Suspect]
     Active Substance: MESALAMINE
     Dosage: 8 DF
     Route: 048
     Dates: start: 201706
  13. MESALAMINE [Suspect]
     Active Substance: MESALAMINE
     Dosage: UNK
     Dates: start: 2017, end: 201709
  14. MESALAMINE [Suspect]
     Active Substance: MESALAMINE
     Dosage: UNK
     Dates: start: 201709, end: 201709
  15. MESALAMINE [Suspect]
     Active Substance: MESALAMINE
     Dosage: 4.8 MG
     Dates: start: 20170101
  16. MESALAMINE [Suspect]
     Active Substance: MESALAMINE
     Dosage: 50 MG
     Dates: start: 20170101, end: 20170901
  17. MESALAMINE [Suspect]
     Active Substance: MESALAMINE
     Dosage: UNK
     Dates: start: 201709, end: 201709
  18. MESALAMINE [Suspect]
     Active Substance: MESALAMINE
     Dosage: 8 DF Q 8 WEEKS
     Dates: start: 201707
  19. MESALAMINE [Suspect]
     Active Substance: MESALAMINE
     Dosage: UNK
     Dates: start: 2017
  20. MESALAMINE [Suspect]
     Active Substance: MESALAMINE
     Dosage: UNK
     Dates: start: 20170101, end: 20170901
  21. MESALAMINE [Suspect]
     Active Substance: MESALAMINE
     Dosage: 50 MG
     Route: 048
     Dates: start: 20170101, end: 20170901
  22. MESALAMINE [Suspect]
     Active Substance: MESALAMINE
     Dosage: 4.8 MG, QD
     Dates: start: 20161001
  23. MESALAMINE [Suspect]
     Active Substance: MESALAMINE
     Dosage: UNK
     Route: 048
     Dates: start: 20160101, end: 20161001
  24. MESALAMINE [Suspect]
     Active Substance: MESALAMINE
     Dosage: 2.4 G, QD
     Dates: start: 20161001
  25. MESALAMINE [Suspect]
     Active Substance: MESALAMINE
     Dosage: 50 MG
     Route: 048
     Dates: start: 20160101, end: 20161001
  26. MESALAMINE [Suspect]
     Active Substance: MESALAMINE
     Dosage: UNK
     Route: 048
     Dates: start: 201601, end: 201610
  27. MESALAMINE [Suspect]
     Active Substance: MESALAMINE
     Dosage: 6 DF, QD
     Dates: start: 20161001
  28. MESALAMINE [Suspect]
     Active Substance: MESALAMINE
     Dosage: 6 DF, QD
     Route: 048
     Dates: start: 20161001
  29. MESALAMINE [Suspect]
     Active Substance: MESALAMINE
     Dosage: UNK
     Route: 048
     Dates: start: 20160101, end: 20161001
  30. MESALAMINE [Suspect]
     Active Substance: MESALAMINE
     Dosage: 2.4 G, QD
     Dates: start: 20161001
  31. MESALAMINE [Suspect]
     Active Substance: MESALAMINE
     Dosage: 3 DF, BID
     Dates: start: 201601
  32. MESALAMINE [Suspect]
     Active Substance: MESALAMINE
     Dosage: 4.8 G, QD
     Dates: start: 20161001
  33. MESALAMINE [Suspect]
     Active Substance: MESALAMINE
     Dosage: 3 DF, BID
     Dates: start: 2016
  34. MESALAMINE [Suspect]
     Active Substance: MESALAMINE
     Dosage: UNK
     Route: 048
     Dates: start: 201601, end: 201610
  35. MESALAMINE [Suspect]
     Active Substance: MESALAMINE
     Dosage: 3 G, QD
     Dates: start: 20160110
  36. MESALAMINE [Suspect]
     Active Substance: MESALAMINE
     Dosage: 6 DF, QD
     Dates: start: 20161001
  37. MESALAMINE [Suspect]
     Active Substance: MESALAMINE
     Dosage: 50 MG
     Route: 048
     Dates: start: 20160101, end: 20161001
  38. MESALAMINE [Suspect]
     Active Substance: MESALAMINE
     Dosage: 4.8 G, QD
     Dates: start: 20161001
  39. MESALAMINE [Suspect]
     Active Substance: MESALAMINE
     Dosage: 3 DF, BID
     Dates: start: 201610
  40. MESALAMINE [Suspect]
     Active Substance: MESALAMINE
     Dosage: 50 MG
     Dates: start: 2009
  41. MESALAMINE [Suspect]
     Active Substance: MESALAMINE
     Dosage: 3 DF, BID
  42. MESALAMINE [Suspect]
     Active Substance: MESALAMINE
     Dosage: UNK
  43. ASACOL [Suspect]
     Active Substance: MESALAMINE
     Indication: Colitis ulcerative
     Dosage: 1 DF
     Route: 048
     Dates: start: 201707
  44. ASACOL [Suspect]
     Active Substance: MESALAMINE
     Dosage: 50 MG
     Route: 065
     Dates: start: 20170101, end: 20170901
  45. ASACOL [Suspect]
     Active Substance: MESALAMINE
     Dosage: 4.8 G, QD
     Dates: start: 20161001
  46. ASACOL [Suspect]
     Active Substance: MESALAMINE
     Dosage: 3 DF, Q12H
     Dates: start: 20161001
  47. ASACOL [Suspect]
     Active Substance: MESALAMINE
     Dosage: 3 G, QD
     Dates: start: 20161001
  48. ASACOL [Suspect]
     Active Substance: MESALAMINE
     Dosage: 3 DF, Q12H
     Dates: start: 20161001
  49. ASACOL [Suspect]
     Active Substance: MESALAMINE
     Dosage: 2.4 G, QD
     Dates: start: 20161001
  50. ASACOL [Suspect]
     Active Substance: MESALAMINE
     Dosage: 6 DF, QD
     Dates: start: 20161001
  51. ASACOL [Suspect]
     Active Substance: MESALAMINE
     Dosage: 3 DF, BID
     Dates: start: 201610
  52. ASACOL [Suspect]
     Active Substance: MESALAMINE
     Dosage: 4.8 G, QD
     Dates: start: 201610
  53. ASACOL [Suspect]
     Active Substance: MESALAMINE
     Dosage: 6 DF, BID
     Dates: start: 201610
  54. ASACOL [Suspect]
     Active Substance: MESALAMINE
     Dosage: 3 G
     Dates: start: 201610
  55. MESALAMINE [Suspect]
     Active Substance: MESALAMINE
     Indication: Product used for unknown indication
     Dosage: UNK
     Route: 048
     Dates: start: 2017
  56. HYDROCORTISONE ACETATE [Suspect]
     Active Substance: HYDROCORTISONE ACETATE
     Indication: Colitis ulcerative
     Dosage: 8 DF, QD
     Route: 048
     Dates: start: 201807
  57. HYDROCORTISONE ACETATE [Suspect]
     Active Substance: HYDROCORTISONE ACETATE
     Indication: Crohn^s disease
     Dosage: 8 DF, Q8WEEKS
     Route: 048
     Dates: start: 201807
  58. HYDROCORTISONE ACETATE [Suspect]
     Active Substance: HYDROCORTISONE ACETATE
     Dosage: 1 DF, QD
     Route: 048
     Dates: start: 201707
  59. HYDROCORTISONE ACETATE [Suspect]
     Active Substance: HYDROCORTISONE ACETATE
     Dosage: 8 DF, QD
     Route: 048
     Dates: start: 201707
  60. HYDROCORTISONE ACETATE [Suspect]
     Active Substance: HYDROCORTISONE ACETATE
     Dosage: UNK, Q 6WEEKS
  61. HYDROCORTISONE ACETATE [Suspect]
     Active Substance: HYDROCORTISONE ACETATE
     Dosage: UNK
     Route: 042
  62. HYDROCORTISONE ACETATE [Suspect]
     Active Substance: HYDROCORTISONE ACETATE
     Dosage: UNK
     Dates: start: 201601, end: 201610
  63. HYDROCORTISONE ACETATE [Suspect]
     Active Substance: HYDROCORTISONE ACETATE
     Dosage: UNK, Q 8 WEEKS
     Route: 048
  64. BUDESONIDE [Suspect]
     Active Substance: BUDESONIDE
     Indication: Colitis ulcerative
     Dosage: 1 DF, QD
     Route: 048
     Dates: start: 20170701
  65. BUDESONIDE [Suspect]
     Active Substance: BUDESONIDE
     Dosage: 8 DF
     Route: 048
     Dates: start: 201707
  66. BUDESONIDE [Suspect]
     Active Substance: BUDESONIDE
     Dosage: 1 DF, QD
     Route: 048
     Dates: start: 201707
  67. BUDESONIDE [Suspect]
     Active Substance: BUDESONIDE
     Dosage: 8 DF
     Route: 048
     Dates: start: 201707
  68. BUDESONIDE [Suspect]
     Active Substance: BUDESONIDE
     Dosage: 8 DF, Q8WEEKS
     Route: 048
     Dates: start: 201707
  69. BUDESONIDE [Suspect]
     Active Substance: BUDESONIDE
     Dosage: UNK UNK, Q8WEEKS
     Route: 048
     Dates: start: 200707
  70. BUDESONIDE [Suspect]
     Active Substance: BUDESONIDE
     Dosage: UNK UNK, Q8WEEKS
     Route: 048
  71. BUDESONIDE [Suspect]
     Active Substance: BUDESONIDE
     Dosage: UNK
     Route: 048
  72. CORTIFOAM [Suspect]
     Active Substance: HYDROCORTISONE ACETATE
     Indication: Colitis ulcerative
     Dosage: 8 DF Q 8 WEEKS
     Route: 048
     Dates: start: 201707
  73. CORTIFOAM [Suspect]
     Active Substance: HYDROCORTISONE ACETATE
     Dosage: 1 DF, QD
     Route: 048
     Dates: start: 201707
  74. CORTIFOAM [Suspect]
     Active Substance: HYDROCORTISONE ACETATE
     Dosage: 1 DF, QD
     Dates: start: 201707
  75. CORTIFOAM [Suspect]
     Active Substance: HYDROCORTISONE ACETATE
     Dosage: UNK, Q8WEEKS
  76. BUDESONIDE [Suspect]
     Active Substance: BUDESONIDE
     Indication: Colitis ulcerative
     Dosage: 1 DF, QD
     Route: 048
     Dates: start: 201707
  77. BUDESONIDE [Suspect]
     Active Substance: BUDESONIDE
     Dosage: 8 DF, QD
     Route: 048
     Dates: start: 201707
  78. BUDESONIDE [Suspect]
     Active Substance: BUDESONIDE
     Dosage: 8 DF,Q8WEEKS
     Route: 048
     Dates: start: 201707
  79. BUDESONIDE [Suspect]
     Active Substance: BUDESONIDE
     Dosage: 8 DF,Q8WEEKS
     Route: 048
     Dates: start: 200707
  80. BUDESONIDE [Suspect]
     Active Substance: BUDESONIDE
     Dosage: 1 DOSAGE FORM, Q8WEEKS
     Route: 048
  81. INFLIXIMAB [Suspect]
     Active Substance: INFLIXIMAB
     Indication: Colitis ulcerative
     Dosage: 5 MG/KG
     Route: 042
     Dates: start: 20170101, end: 20170901
  82. INFLIXIMAB [Suspect]
     Active Substance: INFLIXIMAB
     Indication: Crohn^s disease
     Dosage: UNK UNK, Q8WEEKS
     Route: 042
     Dates: start: 20170101, end: 20170901
  83. INFLIXIMAB [Suspect]
     Active Substance: INFLIXIMAB
     Dosage: UNK
     Route: 042
     Dates: start: 20170101, end: 20170901
  84. INFLIXIMAB [Suspect]
     Active Substance: INFLIXIMAB
     Dosage: 5 MG/KG, Q8WEEKS
     Route: 042
     Dates: start: 20171019
  85. INFLIXIMAB [Suspect]
     Active Substance: INFLIXIMAB
     Dosage: 7 MG/KG, Q8WEEKS
     Route: 042
     Dates: start: 20171019
  86. INFLIXIMAB [Suspect]
     Active Substance: INFLIXIMAB
     Dosage: UNK, Q2WEEKS
     Route: 042
     Dates: start: 20171019
  87. INFLIXIMAB [Suspect]
     Active Substance: INFLIXIMAB
     Dosage: UNK, Q6WEEKS
     Route: 042
     Dates: start: 20171019
  88. INFLIXIMAB [Suspect]
     Active Substance: INFLIXIMAB
     Dosage: UNK, Q8WEEKS
     Route: 042
     Dates: start: 20171019
  89. INFLIXIMAB [Suspect]
     Active Substance: INFLIXIMAB
     Dosage: UNK, Q6WEEKS
     Route: 042
     Dates: start: 201709
  90. INFLIXIMAB [Suspect]
     Active Substance: INFLIXIMAB
     Dosage: UNK
     Route: 042
     Dates: start: 201709
  91. PREDNISONE [Suspect]
     Active Substance: PREDNISONE
     Indication: Colitis ulcerative
     Dosage: UNK
     Dates: start: 2017, end: 2017
  92. PREDNISONE [Suspect]
     Active Substance: PREDNISONE
     Dosage: 50 MG
     Dates: start: 2017, end: 2017
  93. PREDNISONE [Suspect]
     Active Substance: PREDNISONE
     Dosage: 50 MG
     Dates: start: 2017
  94. PREDNISONE [Suspect]
     Active Substance: PREDNISONE
     Dosage: 50 MG
     Dates: start: 2009
  95. PREDNISONE [Suspect]
     Active Substance: PREDNISONE
     Dosage: 50 MG
     Dates: start: 2009, end: 2009
  96. PREDNISONE [Suspect]
     Active Substance: PREDNISONE
     Dosage: UNK
     Dates: start: 2009, end: 2009
  97. PREDNISONE [Suspect]
     Active Substance: PREDNISONE
     Dosage: UNK
     Dates: start: 2009, end: 2016
  98. ENTYVIO [Suspect]
     Active Substance: VEDOLIZUMAB
     Indication: Colitis ulcerative
     Dosage: 1 DF, QD
     Route: 048
     Dates: start: 201807
  99. ENTYVIO [Suspect]
     Active Substance: VEDOLIZUMAB
     Dosage: UNK
     Route: 048
     Dates: start: 201707
  100. ENTYVIO [Suspect]
     Active Substance: VEDOLIZUMAB
     Dosage: UNK
     Route: 042
     Dates: start: 2017
  101. ENTYVIO [Suspect]
     Active Substance: VEDOLIZUMAB
     Dosage: 200 UNK
     Route: 048
     Dates: start: 2017, end: 2017
  102. ENTYVIO [Suspect]
     Active Substance: VEDOLIZUMAB
     Dosage: UNK
     Route: 042
     Dates: start: 201707
  103. MESALAMINE [Suspect]
     Active Substance: MESALAMINE
     Indication: Colitis ulcerative
     Dosage: UNK
     Dates: start: 202109, end: 202109
  104. MESALAMINE [Suspect]
     Active Substance: MESALAMINE
     Dosage: UNK
     Dates: start: 20170101, end: 20170901
  105. MESALAMINE [Suspect]
     Active Substance: MESALAMINE
     Dosage: 4.8 G, QD
     Dates: start: 20170101
  106. MESALAMINE [Suspect]
     Active Substance: MESALAMINE
     Dosage: UNK
     Dates: start: 201709, end: 201709
  107. MESALAMINE [Suspect]
     Active Substance: MESALAMINE
     Dosage: UNK
     Dates: start: 2017, end: 201709
  108. MESALAMINE [Suspect]
     Active Substance: MESALAMINE
     Dosage: UNK, QD
     Route: 048
     Dates: start: 20170101, end: 20170901
  109. MESALAMINE [Suspect]
     Active Substance: MESALAMINE
     Dosage: 50 MG
     Dates: start: 20170101, end: 20170901
  110. MESALAMINE [Suspect]
     Active Substance: MESALAMINE
     Dosage: 8DF Q 8 WEEKS
     Dates: start: 201707
  111. MESALAMINE [Suspect]
     Active Substance: MESALAMINE
     Dosage: 8 DF, Q 8WEEKS
     Route: 048
     Dates: start: 201706
  112. MESALAMINE [Suspect]
     Active Substance: MESALAMINE
     Dosage: UNK
     Route: 048
     Dates: start: 20160101, end: 201610
  113. MESALAMINE [Suspect]
     Active Substance: MESALAMINE
     Dosage: 2.4 G, QD
     Dates: start: 20161001
  114. MESALAMINE [Suspect]
     Active Substance: MESALAMINE
     Dosage: 50 MG
     Dates: start: 20160101, end: 20161001
  115. MESALAMINE [Suspect]
     Active Substance: MESALAMINE
     Dosage: 3 DF, BID
     Dates: start: 201610
  116. MESALAMINE [Suspect]
     Active Substance: MESALAMINE
     Dosage: UNK
     Route: 048
     Dates: start: 20160101, end: 20161001
  117. MESALAMINE [Suspect]
     Active Substance: MESALAMINE
     Dosage: UNK
     Dates: start: 20160101, end: 201610
  118. MESALAMINE [Suspect]
     Active Substance: MESALAMINE
     Dosage: 6 DF, QD
     Dates: start: 20161001
  119. MESALAMINE [Suspect]
     Active Substance: MESALAMINE
     Dosage: 4.8 G, QD
     Route: 048
     Dates: start: 20161001
  120. MESALAMINE [Suspect]
     Active Substance: MESALAMINE
     Dosage: 2.4 G, QD
     Route: 048
     Dates: start: 201601, end: 201610
  121. MESALAMINE [Suspect]
     Active Substance: MESALAMINE
     Dosage: 50 MG
     Dates: start: 2009
  122. MESALAMINE [Suspect]
     Active Substance: MESALAMINE
     Dosage: UNK
  123. WARFARIN [Suspect]
     Active Substance: WARFARIN
     Indication: Deep vein thrombosis
     Dosage: UNK
     Dates: start: 2019
  124. WARFARIN [Suspect]
     Active Substance: WARFARIN
     Dosage: 8 DF, Q8WEEKS
     Route: 048
     Dates: start: 201707
  125. WARFARIN [Suspect]
     Active Substance: WARFARIN
     Dosage: 1 DF, QD
     Route: 048
     Dates: start: 201707
  126. WARFARIN [Suspect]
     Active Substance: WARFARIN
     Dosage: UNK
     Route: 048
     Dates: start: 2009
  127. WARFARIN [Suspect]
     Active Substance: WARFARIN
     Dosage: UNK
     Dates: start: 2009
  128. ADALIMUMAB [Suspect]
     Active Substance: ADALIMUMAB
     Indication: Crohn^s disease
     Dosage: 8 DF, UNKNOWN
     Route: 048
     Dates: start: 201707
  129. WARFARIN SODIUM [Suspect]
     Active Substance: WARFARIN SODIUM
     Indication: Colitis ulcerative
     Dosage: UNK
     Dates: start: 2019
  130. WARFARIN SODIUM [Suspect]
     Active Substance: WARFARIN SODIUM
     Indication: Deep vein thrombosis
     Dosage: 1 DF, QD
     Route: 048
     Dates: start: 201707
  131. WARFARIN SODIUM [Suspect]
     Active Substance: WARFARIN SODIUM
     Dosage: UNK
     Dates: start: 201707
  132. WARFARIN SODIUM [Suspect]
     Active Substance: WARFARIN SODIUM
     Dosage: 8 DOSAGE FORM, Q8WEEKS
     Route: 048
     Dates: start: 201707
  133. WARFARIN SODIUM [Suspect]
     Active Substance: WARFARIN SODIUM
     Dosage: UNK
     Route: 048
     Dates: start: 2009, end: 2009
  134. VEDOLIZUMAB [Suspect]
     Active Substance: VEDOLIZUMAB
     Indication: Colitis ulcerative
     Dosage: UNK
     Route: 042
     Dates: start: 2019, end: 2019
  135. VEDOLIZUMAB [Suspect]
     Active Substance: VEDOLIZUMAB
     Indication: Deep vein thrombosis
     Dosage: 1 DF, QD
     Route: 048
     Dates: start: 201807
  136. VEDOLIZUMAB [Suspect]
     Active Substance: VEDOLIZUMAB
     Dosage: UNK
     Route: 048
     Dates: start: 2017, end: 2017
  137. VEDOLIZUMAB [Suspect]
     Active Substance: VEDOLIZUMAB
     Dosage: UNK
     Route: 042
     Dates: start: 2017, end: 2017
  138. VEDOLIZUMAB [Suspect]
     Active Substance: VEDOLIZUMAB
     Dosage: UNK
     Route: 042
     Dates: start: 2017
  139. VEDOLIZUMAB [Suspect]
     Active Substance: VEDOLIZUMAB
     Dosage: 1 DF, QD
     Route: 048
  140. VEDOLIZUMAB [Suspect]
     Active Substance: VEDOLIZUMAB
     Dosage: UNK
     Dates: start: 2009, end: 2019
  141. VEDOLIZUMAB [Suspect]
     Active Substance: VEDOLIZUMAB
     Dosage: 8 DF, Q WEEK
     Route: 048
     Dates: start: 201807
  142. HYDROCORTISONE [Suspect]
     Active Substance: HYDROCORTISONE
     Indication: Colitis ulcerative
     Dosage: 8 DF, QD
     Route: 048
     Dates: start: 201807
  143. HYDROCORTISONE [Suspect]
     Active Substance: HYDROCORTISONE
     Dosage: 8 DF, Q 8 WEEKS
     Route: 048
     Dates: start: 201807
  144. HYDROCORTISONE [Suspect]
     Active Substance: HYDROCORTISONE
     Dosage: 8 DF, QD
     Route: 048
     Dates: start: 201807
  145. HYDROCORTISONE [Suspect]
     Active Substance: HYDROCORTISONE
     Dosage: 1 DF, QD
     Route: 048
     Dates: start: 201807
  146. HYDROCORTISONE [Suspect]
     Active Substance: HYDROCORTISONE
     Dosage: 8 DF, Q 8 WEEKS
     Route: 048
     Dates: start: 201707
  147. HYDROCORTISONE [Suspect]
     Active Substance: HYDROCORTISONE
     Dosage: 1 DF, QD
     Route: 048
  148. HYDROCORTISONE [Suspect]
     Active Substance: HYDROCORTISONE
     Dosage: 8 DF, Q 8 WEEKS
     Route: 048
  149. HYDROCORTISONE [Suspect]
     Active Substance: HYDROCORTISONE
     Dosage: 3 DF, BID
     Route: 048
     Dates: start: 201610
  150. ALBENDAZOLE [Suspect]
     Active Substance: ALBENDAZOLE
     Indication: Colitis ulcerative
     Dosage: UNK
     Route: 042
     Dates: start: 2017, end: 2017
  151. HUMIRA [Concomitant]
     Active Substance: ADALIMUMAB
     Indication: Crohn^s disease
     Dosage: UNK DF
     Dates: start: 201709, end: 201709
  152. HUMIRA [Concomitant]
     Active Substance: ADALIMUMAB
     Indication: Deep vein thrombosis
     Dosage: 8 DF
     Route: 048
     Dates: start: 201707
  153. SULFASALAZINE [Concomitant]
     Active Substance: SULFASALAZINE
     Indication: Product used for unknown indication
     Dosage: UNK
     Route: 065
     Dates: start: 201709, end: 201709
  154. SULFASALAZINE [Concomitant]
     Active Substance: SULFASALAZINE
     Dosage: UNK
     Dates: start: 20160101, end: 20160101
  155. SULFASALAZINE [Concomitant]
     Active Substance: SULFASALAZINE
     Dosage: UNK, QD
     Route: 065
     Dates: start: 2009, end: 2016
  156. SULFASALAZINE [Concomitant]
     Active Substance: SULFASALAZINE
     Dosage: UNK
     Dates: start: 20091001, end: 20161001
  157. SULFASALAZINE [Concomitant]
     Active Substance: SULFASALAZINE
     Dosage: UNK
     Dates: start: 20090101, end: 20160101
  158. SULFASALAZINE [Concomitant]
     Active Substance: SULFASALAZINE
     Dosage: 3 MG, QD
     Route: 048
  159. SULFASALAZINE [Concomitant]
     Active Substance: SULFASALAZINE
     Dosage: 5 MG, QD
     Route: 048
  160. XELJANZ [Concomitant]
     Active Substance: TOFACITINIB CITRATE
     Indication: Colitis ulcerative
     Dosage: 5 MG, BID
     Route: 048
  161. METHOTREXATE [Concomitant]
     Active Substance: METHOTREXATE
     Indication: Colitis ulcerative
     Dosage: 1 DF, QD
     Dates: start: 201709
  162. METHOTREXATE [Concomitant]
     Active Substance: METHOTREXATE
     Dosage: UNK
     Dates: start: 20090101, end: 20160101
  163. METHOTREXATE [Concomitant]
     Active Substance: METHOTREXATE
     Dosage: 8 DF, Q8WEEKS
     Dates: start: 200707

REACTIONS (19)
  - Bronchiectasis [Unknown]
  - Condition aggravated [Not Recovered/Not Resolved]
  - Deep vein thrombosis [Unknown]
  - Weight decreased [Unknown]
  - Loss of personal independence in daily activities [Unknown]
  - Impaired quality of life [Unknown]
  - Colitis ulcerative [Unknown]
  - Frequent bowel movements [Unknown]
  - Steroid dependence [Unknown]
  - Impaired work ability [Unknown]
  - Rectal haemorrhage [Unknown]
  - Haematochezia [Unknown]
  - Stress [Not Recovered/Not Resolved]
  - Product use in unapproved indication [Unknown]
  - Off label use [Unknown]
  - Medication error [Unknown]
  - Intentional product use issue [Unknown]
  - Inappropriate schedule of product administration [Unknown]
  - Drug ineffective [Unknown]

NARRATIVE: CASE EVENT DATE: 20080101
